FAERS Safety Report 5201750-X (Version None)
Quarter: 2007Q1

REPORT INFORMATION
  Report Type: 
  Country: None (occurrence: None)
  Receive Date: 20070104
  Receipt Date: 20061222
  Transmission Date: 20070707
  Serious: Yes (Life-Threatening)
  Sender: FDA-Public Use
  Company Number: 2006JP005326

PATIENT
  Age: 82 Year
  Sex: Female
  Weight: 55 kg

DRUGS (6)
  1. VESICARE (SOLIFENACIN) TABLET, 5MG [Suspect]
     Indication: HYPERTONIC BLADDER
     Dosage: 5MG, UID/QD; UNK
     Dates: start: 20061102, end: 20061102
  2. SEROCRAL (FENPRODIL TARTRATE) [Concomitant]
  3. NORVASC [Concomitant]
  4. GASMOTIN (MOSAPRIDE CITRATE) [Concomitant]
  5. DOXAZOSIN MESYLATE [Concomitant]
  6. DIOVAN [Concomitant]

REACTIONS (4)
  - ANGINA PECTORIS [None]
  - CARDIOMEGALY [None]
  - CORONARY ARTERY DISEASE [None]
  - CORONARY ARTERY STENOSIS [None]
